FAERS Safety Report 14333443 (Version 1)
Quarter: 2017Q4

REPORT INFORMATION
  Report Type: Report from Study
  Country: US (occurrence: US)
  Receive Date: 20171228
  Receipt Date: 20171228
  Transmission Date: 20180321
  Serious: Yes (Other)
  Sender: FDA-Public Use
  Company Number: US-TEVA-2017-US-839712

PATIENT
  Sex: Female

DRUGS (4)
  1. FLUVOXAMINE [Suspect]
     Active Substance: FLUVOXAMINE
     Indication: OBSESSIVE-COMPULSIVE DISORDER
  2. FLUVOXAMINE [Interacting]
     Active Substance: FLUVOXAMINE
     Indication: OBSESSIVE-COMPULSIVE DISORDER
  3. RILUZOLE. [Interacting]
     Active Substance: RILUZOLE
     Indication: OBSESSIVE-COMPULSIVE DISORDER
     Dosage: APPROXIMATELY 100MG/DAY
  4. RILUZOLE. [Interacting]
     Active Substance: RILUZOLE
     Indication: OBSESSIVE-COMPULSIVE DISORDER
     Dosage: APPROXIMATELY 100MG/DAY

REACTIONS (3)
  - Pancreatitis [Recovered/Resolved]
  - Drug interaction [Unknown]
  - Drug level increased [Unknown]
